FAERS Safety Report 16038598 (Version 3)
Quarter: 2019Q2

REPORT INFORMATION
  Report Type: Spontaneous
  Country: US (occurrence: US)
  Receive Date: 20190305
  Receipt Date: 20190408
  Transmission Date: 20190711
  Serious: Yes (Other)
  Sender: FDA-Public Use
  Company Number: US-AMGEN-USASP2019034029

PATIENT
  Age: 59 Year
  Sex: Male
  Weight: 99.77 kg

DRUGS (4)
  1. OXYCODONE [Concomitant]
     Active Substance: OXYCODONE
     Indication: CERVICAL RADICULOPATHY
     Dosage: 20 MILLIGRAM (EVERY 6)
  2. AIMOVIG [Suspect]
     Active Substance: ERENUMAB-AOOE
     Indication: MIGRAINE
     Dosage: 70 MILLIGRAM
     Route: 058
     Dates: start: 20190110, end: 20190110
  3. MAXALT [Concomitant]
     Active Substance: RIZATRIPTAN BENZOATE
     Dosage: 10 MILLIGRAM, AS NECESSARY
  4. FENTANYL. [Concomitant]
     Active Substance: FENTANYL
     Indication: CERVICAL RADICULOPATHY
     Dosage: 50 MICROGRAM (EVERY 48)

REACTIONS (1)
  - Transient ischaemic attack [Recovered/Resolved]

NARRATIVE: CASE EVENT DATE: 20190110
